FAERS Safety Report 10094657 (Version 1)
Quarter: 2014Q2

REPORT INFORMATION
  Report Type: Spontaneous
  Country: IN (occurrence: IN)
  Receive Date: 20140422
  Receipt Date: 20140422
  Transmission Date: 20141212
  Serious: Yes (Other)
  Sender: FDA-Public Use
  Company Number: IN-SA-2014SA050257

PATIENT
  Age: 41 Year
  Sex: Female

DRUGS (2)
  1. ALLEGRA [Suspect]
     Indication: PRODUCT USED FOR UNKNOWN INDICATION
     Route: 048
  2. ALL OTHER THERAPEUTIC PRODUCTS [Concomitant]
     Dosage: DAILY DOSE1 QD.?START DATEC 12/4 END DATE 14/4
     Route: 048

REACTIONS (2)
  - Somnolence [Recovered/Resolved]
  - Rash [Recovered/Resolved]
